FAERS Safety Report 11505519 (Version 1)
Quarter: 2015Q3

REPORT INFORMATION
  Report Type: Spontaneous
  Country: US (occurrence: US)
  Receive Date: 20150915
  Receipt Date: 20150915
  Transmission Date: 20151125
  Serious: No
  Sender: FDA-Public Use
  Company Number: US-ROCHE-795678

PATIENT
  Sex: Female
  Weight: 65.8 kg

DRUGS (2)
  1. PEGASYS [Suspect]
     Active Substance: PEGINTERFERON ALFA-2A
     Indication: HEPATITIS C
     Dosage: FREQUENCY: WEEKLY
     Route: 058
     Dates: start: 200210, end: 200303
  2. RIBAVIRIN. [Suspect]
     Active Substance: RIBAVIRIN
     Indication: HEPATITIS C
     Dosage: FREQUENCY: DAILY
     Route: 048

REACTIONS (11)
  - Weight decreased [Unknown]
  - Nausea [Unknown]
  - Diarrhoea [Unknown]
  - Memory impairment [Unknown]
  - Mood swings [Unknown]
  - Arthralgia [Unknown]
  - Decreased appetite [Unknown]
  - Headache [Unknown]
  - Depression [Unknown]
  - Fatigue [Unknown]
  - Muscular weakness [Unknown]
